APPROVED DRUG PRODUCT: CARBIDOPA
Active Ingredient: CARBIDOPA
Strength: 25MG
Dosage Form/Route: TABLET;ORAL
Application: A204291 | Product #001
Applicant: ALVOGEN INC
Approved: Jan 8, 2016 | RLD: No | RS: No | Type: DISCN